APPROVED DRUG PRODUCT: DILTIAZEM HYDROCHLORIDE
Active Ingredient: DILTIAZEM HYDROCHLORIDE
Strength: 180MG
Dosage Form/Route: CAPSULE, EXTENDED RELEASE;ORAL
Application: A076563 | Product #003
Applicant: NESHER PHARMACEUTICALS USA LLC
Approved: Sep 12, 2006 | RLD: No | RS: No | Type: DISCN